FAERS Safety Report 4881454-3 (Version None)
Quarter: 2005Q4

REPORT INFORMATION
  Report Type: 
  Country: None (occurrence: None)
  Receive Date: 20051209
  Receipt Date: 20050620
  Transmission Date: 20060501
  Serious: Yes (Other)
  Sender: FDA-Public Use
  Company Number: USA-2005-0020624

PATIENT
  Age: 21 Year
  Sex: Female

DRUGS (4)
  1. OXYCONTIN [Suspect]
  2. MARIJUANA (CANNABIS) [Suspect]
  3. HEROIN (DIAMORPHINE) [Suspect]
  4. METHADONE HCL [Suspect]

REACTIONS (1)
  - POLYSUBSTANCE ABUSE [None]
